FAERS Safety Report 10475673 (Version 1)
Quarter: 2014Q3

REPORT INFORMATION
  Report Type: Spontaneous
  Country: CA (occurrence: CA)
  Receive Date: 20140925
  Receipt Date: 20140925
  Transmission Date: 20150326
  Serious: Yes (Hospitalization, Disabling, Other)
  Sender: FDA-Public Use
  Company Number: CA-TEVA-511390USA

PATIENT
  Age: 51 Year
  Sex: Female
  Weight: 76.27 kg

DRUGS (4)
  1. OMEGA - 3 [Concomitant]
  2. VITAMIN D [Concomitant]
     Active Substance: CHOLECALCIFEROL
  3. FLAXSEED [Concomitant]
     Active Substance: FLAX SEED
  4. LOVASTATIN. [Suspect]
     Active Substance: LOVASTATIN
     Indication: PRODUCT USED FOR UNKNOWN INDICATION
     Dosage: 20 MILLIGRAM DAILY;
     Route: 048

REACTIONS (1)
  - Dermatitis bullous [Not Recovered/Not Resolved]
